FAERS Safety Report 17920228 (Version 1)
Quarter: 2020Q2

REPORT INFORMATION
  Report Type: Spontaneous
  Country: US (occurrence: US)
  Receive Date: 20200620
  Receipt Date: 20200620
  Transmission Date: 20200714
  Serious: No
  Sender: FDA-Public Use
  Company Number: US-UNITED THERAPEUTICS-UNT-2020-006300

PATIENT
  Sex: Female
  Weight: 52.15 kg

DRUGS (8)
  1. TYVASO [Suspect]
     Active Substance: TREPROSTINIL
     Dosage: 66 ?G, QID
  2. OPSUMIT [Suspect]
     Active Substance: MACITENTAN
     Indication: PRODUCT USED FOR UNKNOWN INDICATION
     Dosage: UNK
     Route: 065
  3. TYVASO [Suspect]
     Active Substance: TREPROSTINIL
     Indication: PULMONARY ARTERIAL HYPERTENSION
     Dosage: 72 ?G, QID
  4. TYVASO [Suspect]
     Active Substance: TREPROSTINIL
     Dosage: UNK
     Dates: start: 20140411
  5. TYVASO [Suspect]
     Active Substance: TREPROSTINIL
     Dosage: 60-120 ?G, QID
  6. SILDENAFIL CITRATE. [Suspect]
     Active Substance: SILDENAFIL CITRATE
     Indication: PRODUCT USED FOR UNKNOWN INDICATION
     Dosage: UNK
     Route: 065
  7. OXYGEN. [Suspect]
     Active Substance: OXYGEN
     Indication: PRODUCT USED FOR UNKNOWN INDICATION
     Dosage: UNK
     Route: 065
  8. TYVASO [Suspect]
     Active Substance: TREPROSTINIL
     Dosage: UNK

REACTIONS (7)
  - Dizziness [Unknown]
  - Rhinorrhoea [Unknown]
  - Nasal congestion [Unknown]
  - Respiratory tract congestion [Unknown]
  - Drug hypersensitivity [Unknown]
  - Off label use [Unknown]
  - Therapeutic response decreased [Unknown]
